FAERS Safety Report 8674265 (Version 2)
Quarter: 2013Q1

REPORT INFORMATION
  Report Type: Spontaneous
  Country: US (occurrence: US)
  Receive Date: 20120719
  Receipt Date: 20130204
  Transmission Date: 20140127
  Serious: Yes (Other)
  Sender: FDA-Public Use
  Company Number: US-B.I. PHARMACEUTICALS,INC./RIDGEFIELD-2012-BP-15696BP

PATIENT
  Age: 71 None
  Sex: Female

DRUGS (8)
  1. PRADAXA [Suspect]
     Indication: ATRIAL FIBRILLATION
     Dosage: 300 MG
     Route: 048
     Dates: start: 201108
  2. ESTRADIOL [Concomitant]
     Indication: BLOOD OESTROGEN DECREASED
     Dosage: 0.5 MG
     Route: 048
  3. SOTALOL [Concomitant]
     Indication: ATRIAL FIBRILLATION
     Dosage: 160 MG
     Route: 048
  4. METHIMAZOLE [Concomitant]
     Indication: HYPERTHYROIDISM
     Dosage: 5 MG
     Route: 048
  5. CRESTOR [Concomitant]
     Indication: BLOOD CHOLESTEROL INCREASED
     Dosage: 20 MG
     Route: 048
  6. LATANOPROST [Concomitant]
     Indication: GLAUCOMA
     Route: 031
  7. AMBIEN [Concomitant]
     Indication: INSOMNIA
     Dosage: 5 MG
     Route: 048
  8. XANAX [Concomitant]
     Indication: ANXIETY
     Route: 048

REACTIONS (6)
  - Transient ischaemic attack [Recovered/Resolved with Sequelae]
  - Stasis dermatitis [Not Recovered/Not Resolved]
  - Foot fracture [Not Recovered/Not Resolved]
  - Foot fracture [Not Recovered/Not Resolved]
  - Ligament sprain [Not Recovered/Not Resolved]
  - Contusion [Not Recovered/Not Resolved]
